FAERS Safety Report 24200620 (Version 4)
Quarter: 2024Q4

REPORT INFORMATION
  Report Type: Spontaneous
  Country: US (occurrence: US)
  Receive Date: 20240812
  Receipt Date: 20241213
  Transmission Date: 20250115
  Serious: Yes (Other)
  Sender: ANI
  Company Number: US-ANIPHARMA-2024-US-036776

PATIENT
  Age: 75 Year
  Sex: Female
  Weight: 68.04 kg

DRUGS (29)
  1. CORTICOTROPIN [Suspect]
     Active Substance: CORTICOTROPIN
     Indication: Rheumatoid arthritis
     Dosage: INJECT 40 UNITS (0.5ML) SUBCUTANEOUSLY TWO TIMES A WEEK AS DIRECTED. / 0.4 MLS TWICE WEEKLY
     Route: 058
     Dates: start: 202405
  2. VEOZAH [Concomitant]
     Active Substance: FEZOLINETANT
  3. LETROZOLE [Concomitant]
     Active Substance: LETROZOLE
  4. PREDNISONE [Concomitant]
     Active Substance: PREDNISONE
  5. ASPIRIN [Concomitant]
     Active Substance: ASPIRIN
  6. SIMVASTATIN [Concomitant]
     Active Substance: SIMVASTATIN
  7. FOLIC ACID [Concomitant]
     Active Substance: FOLIC ACID
  8. GABAPENTIN [Concomitant]
     Active Substance: GABAPENTIN
  9. NUTRAFOL [Concomitant]
  10. OCUVITE [Concomitant]
     Active Substance: VITAMINS
  11. B12 [Concomitant]
  12. RITUXAN [Suspect]
     Active Substance: RITUXIMAB
  13. SuperBeets [Concomitant]
  14. VITAMIN E [Concomitant]
     Active Substance: .ALPHA.-TOCOPHEROL
  15. CALCIUM [Concomitant]
     Active Substance: CALCIUM
  16. VITAMIN B COMPLEX [Concomitant]
     Active Substance: CYANOCOBALAMIN\DEXPANTHENOL\NIACINAMIDE\PYRIDOXINE HYDROCHLORIDE\RIBOFLAVIN 5^-PHOSPHATE SODIUM\THIA
  17. COENZYME Q10 [Concomitant]
     Active Substance: DIETARY SUPPLEMENT\UBIDECARENONE
  18. GARLIQUE [Concomitant]
     Active Substance: GARLIC
  19. DIETARY SUPPLEMENT [Concomitant]
     Active Substance: DIETARY SUPPLEMENT
  20. VITAMIN D3 [Concomitant]
     Active Substance: CHOLECALCIFEROL
  21. MAGNESIUM [Concomitant]
     Active Substance: MAGNESIUM
  22. METOPROLOL [Concomitant]
     Active Substance: METOPROLOL
     Dosage: 25 MG TWICE DAILY
  23. ACTEMRA [Concomitant]
     Active Substance: TOCILIZUMAB
  24. NIFEDIPINE [Concomitant]
     Active Substance: NIFEDIPINE
  25. HYDRALAZINE [Concomitant]
     Active Substance: HYDRALAZINE HYDROCHLORIDE
  26. VOLTAREN [Concomitant]
     Active Substance: DICLOFENAC SODIUM
     Dosage: APPLIED TOPICALLY TO SHOULDERS AS NEEDED
  27. LEFLUNOMIDE [Concomitant]
     Active Substance: LEFLUNOMIDE
  28. SULFASALAZINE [Concomitant]
     Active Substance: SULFASALAZINE
  29. potassium CL micro [Concomitant]

REACTIONS (7)
  - Drug ineffective [Not Recovered/Not Resolved]
  - Incorrect dosage administered [Recovered/Resolved]
  - Product use in unapproved indication [Not Recovered/Not Resolved]
  - Drug ineffective for unapproved indication [Not Recovered/Not Resolved]
  - Contraindicated product administered [Not Recovered/Not Resolved]
  - Polymyalgia rheumatica [Unknown]
  - Hypertension [Unknown]

NARRATIVE: CASE EVENT DATE: 20240501
